FAERS Safety Report 7783466-9 (Version None)
Quarter: 2011Q3

REPORT INFORMATION
  Report Type: 
  Country: None (occurrence: None)
  Receive Date: 20110928
  Receipt Date: 20110523
  Transmission Date: 20111222
  Serious: No
  Sender: FDA-Public Use
  Company Number: US-MYLANLABS-2011S1008446

PATIENT
  Age: 16 Month
  Sex: Male

DRUGS (1)
  1. CYSTAGON [Suspect]
     Indication: CYSTINOSIS

REACTIONS (2)
  - VOMITING [None]
  - IMPAIRED GASTRIC EMPTYING [None]
